FAERS Safety Report 5826288-8 (Version None)
Quarter: 2008Q3

REPORT INFORMATION
  Report Type: 
  Country: None (occurrence: None)
  Receive Date: 20080729
  Receipt Date: 20080717
  Transmission Date: 20090109
  Serious: No
  Sender: FDA-Public Use
  Company Number: CH-PFIZER INC-2008053773

PATIENT
  Sex: Male

DRUGS (3)
  1. LYRICA [Suspect]
     Indication: PAIN
     Route: 048
     Dates: start: 20080303, end: 20080101
  2. LYRICA [Suspect]
     Indication: SYRINGOMYELIA
  3. REMERON [Concomitant]
     Route: 048
     Dates: start: 20071111

REACTIONS (3)
  - DRUG INEFFECTIVE [None]
  - FATIGUE [None]
  - GAIT DISTURBANCE [None]
